FAERS Safety Report 6475130-3 (Version None)
Quarter: 2009Q4

REPORT INFORMATION
  Report Type: 
  Country: None (occurrence: None)
  Receive Date: 20091204
  Receipt Date: 20090504
  Transmission Date: 20100525
  Serious: Yes (Hospitalization)
  Sender: FDA-Public Use
  Company Number: NZ-ELI_LILLY_AND_COMPANY-NZ200903005302

PATIENT
  Sex: Female

DRUGS (3)
  1. ZYPREXA [Suspect]
     Indication: SCHIZOPHRENIA
     Dosage: 20 MG, DAILY (1/D)
     Route: 048
  2. ZOPICLONE [Concomitant]
     Dosage: 15 MG, DAILY (1/D)
  3. QUETIAPINE [Concomitant]
     Dosage: 25 MG, UNK
     Dates: start: 20090302, end: 20090316

REACTIONS (2)
  - HOSPITALISATION [None]
  - RASH [None]
